FAERS Safety Report 8949756 (Version 1)
Quarter: 2012Q4

REPORT INFORMATION
  Report Type: Report from Study
  Country: ES (occurrence: ES)
  Receive Date: 20121206
  Receipt Date: 20121206
  Transmission Date: 20130627
  Serious: Yes (Life-Threatening)
  Sender: FDA-Public Use
  Company Number: ES-ROCHE-1161885

PATIENT
  Age: 58 Year
  Sex: Male
  Weight: 74 kg

DRUGS (4)
  1. CAPECITABINE [Suspect]
     Indication: COLON CANCER
     Dosage: Date of last dose prior to SAE: 09/Nov/2012
     Route: 048
     Dates: start: 20120924, end: 20121109
  2. BEVACIZUMAB [Suspect]
     Indication: COLON CANCER
     Dosage: Date of last dose prior to SAE: 06/Nov/2012
     Route: 042
     Dates: start: 20120924
  3. OXALIPLATIN [Suspect]
     Indication: COLON CANCER
     Dosage: Date of last dose prior to SAE: 06/Nov/2012
     Route: 042
     Dates: start: 20120924, end: 20121106
  4. AMLODIPINO [Concomitant]
     Indication: HYPERTENSION
     Route: 065
     Dates: start: 20121112

REACTIONS (1)
  - Renal failure acute [Recovered/Resolved]
